FAERS Safety Report 17694593 (Version 2)
Quarter: 2020Q2

REPORT INFORMATION
  Report Type: Report from Study
  Country: DE (occurrence: DE)
  Receive Date: 20200422
  Receipt Date: 20200626
  Transmission Date: 20200714
  Serious: Yes (Life-Threatening, Other)
  Sender: FDA-Public Use
  Company Number: NVSC2020DE107307

PATIENT
  Age: 7 Year
  Sex: Male
  Weight: 16.8 kg

DRUGS (2)
  1. SOMATROPIN. [Suspect]
     Active Substance: SOMATROPIN
     Dosage: 0.5 MG, QD (5 MG/1.5 ML)
     Route: 065
     Dates: start: 201911, end: 20200309
  2. SOMATROPIN. [Suspect]
     Active Substance: SOMATROPIN
     Indication: GROWTH HORMONE DEFICIENCY
     Dosage: 0.7 MG, QD (5 MG/1.5 ML)
     Route: 065
     Dates: start: 20171201, end: 201911

REACTIONS (5)
  - Idiopathic intracranial hypertension [Recovered/Resolved]
  - Disease recurrence [Recovered/Resolved]
  - Headache [Recovered/Resolved]
  - Headache [Recovered/Resolved]
  - Craniopharyngioma [Recovered/Resolved]

NARRATIVE: CASE EVENT DATE: 201911
